FAERS Safety Report 6088679-2 (Version None)
Quarter: 2009Q1

REPORT INFORMATION
  Report Type: 
  Country: None (occurrence: None)
  Receive Date: 20090224
  Receipt Date: 20090220
  Transmission Date: 20090719
  Serious: Yes (Death, Life-Threatening, Hospitalization)
  Sender: FDA-Public Use
  Company Number: NL-BRISTOL-MYERS SQUIBB COMPANY-14485809

PATIENT
  Age: 53 Year
  Sex: Male

DRUGS (6)
  1. CETUXIMAB [Suspect]
     Indication: NON-SMALL CELL LUNG CANCER
     Dosage: STRENGTH:5MG/ML;  RECENT INFUSION:5AUG08
     Route: 042
     Dates: start: 20080701, end: 20080805
  2. CARBOPLATIN [Suspect]
     Indication: NON-SMALL CELL LUNG CANCER
     Dosage: 1 DOSAGE FORM= 5AUC;RECENT INFUSION :17JUN08
     Route: 042
     Dates: start: 20080527, end: 20080617
  3. CISPLATIN [Suspect]
     Indication: NON-SMALL CELL LUNG CANCER
     Dosage: RECENT INFUSION : 29JUL08, INITIAL INFUSION ON 22JUL08
     Route: 042
     Dates: start: 20080708, end: 20080729
  4. GEMCITABINE [Suspect]
     Indication: NON-SMALL CELL LUNG CANCER
     Dosage: RECENT INFUSION :24JUN08
     Route: 042
     Dates: start: 20080527, end: 20080624
  5. VINORELBINE [Suspect]
     Indication: NON-SMALL CELL LUNG CANCER
     Dosage: RECENT INFUSION : 05AUG08
     Route: 042
     Dates: start: 20080708, end: 20080805
  6. RADIOTHERAPY [Suspect]
     Indication: NON-SMALL CELL LUNG CANCER
     Dates: start: 20080708, end: 20080807

REACTIONS (1)
  - HAEMOPTYSIS [None]
